FAERS Safety Report 4714479-9 (Version None)
Quarter: 2005Q3

REPORT INFORMATION
  Report Type: 
  Country: None (occurrence: None)
  Receive Date: 20050712
  Receipt Date: 20050509
  Transmission Date: 20060218
  Serious: No
  Sender: FDA-Public Use
  Company Number: 11085

PATIENT
  Age: 17 Year
  Sex: Male

DRUGS (2)
  1. METHOTREXATE [Suspect]
     Indication: JUVENILE ARTHRITIS
     Dosage: 17.5 MG WEEKLY; SC
     Route: 058
     Dates: start: 20030101
  2. FOLIC ACID [Concomitant]

REACTIONS (1)
  - SUNBURN [None]
